FAERS Safety Report 7324501-1 (Version None)
Quarter: 2011Q1

REPORT INFORMATION
  Report Type: 
  Country: None (occurrence: None)
  Receive Date: 20110203
  Receipt Date: 20100806
  Transmission Date: 20110831
  Serious: Yes (Hospitalization, Disabling, Other)
  Sender: FDA-Public Use
  Company Number: 8031585

PATIENT
  Sex: Female
  Weight: 82 kg

DRUGS (6)
  1. REBIF [Suspect]
     Indication: RELAPSING-REMITTING MULTIPLE SCLEROSIS
     Dosage: (44 UG 3X/WEEK SUBCUTANEOUS), (44 UG 3X/WEEK SUBCUTANEOUS), (44 UG 3X/WEEK SUBCUTANEOUS)
     Route: 058
     Dates: start: 20061103, end: 20080402
  2. REBIF [Suspect]
     Indication: RELAPSING-REMITTING MULTIPLE SCLEROSIS
     Dosage: (44 UG 3X/WEEK SUBCUTANEOUS), (44 UG 3X/WEEK SUBCUTANEOUS), (44 UG 3X/WEEK SUBCUTANEOUS)
     Route: 058
     Dates: start: 20080302
  3. REBIF [Suspect]
     Indication: RELAPSING-REMITTING MULTIPLE SCLEROSIS
     Dosage: (44 UG 3X/WEEK SUBCUTANEOUS), (44 UG 3X/WEEK SUBCUTANEOUS), (44 UG 3X/WEEK SUBCUTANEOUS)
     Route: 058
     Dates: start: 20081201, end: 20090901
  4. REBIF [Suspect]
     Indication: RELAPSING-REMITTING MULTIPLE SCLEROSIS
     Dosage: (44 UG 3X/WEEK SUBCUTANEOUS), (44 UG 3X/WEEK SUBCUTANEOUS), (44 UG 3X/WEEK SUBCUTANEOUS)
     Route: 058
     Dates: start: 20080402, end: 20081201
  5. KEPPRA [Suspect]
     Dates: start: 20070701, end: 20070901
  6. ORTHO-NOVUM [Concomitant]

REACTIONS (1)
  - PANCREATITIS [None]
